FAERS Safety Report 6366866-3 (Version None)
Quarter: 2009Q3

REPORT INFORMATION
  Report Type: 
  Country: None (occurrence: None)
  Receive Date: 20090921
  Receipt Date: 20090916
  Transmission Date: 20100115
  Serious: Yes (Other)
  Sender: FDA-Public Use
  Company Number: US-ALLERGAN-0907165US

PATIENT
  Age: 45 Year
  Sex: Female

DRUGS (7)
  1. BOTOX [Suspect]
     Indication: MUSCLE SPASTICITY
     Dosage: 300 UNITS, SINGLE
     Route: 030
     Dates: start: 20090306, end: 20090306
  2. BOTOX [Suspect]
     Dosage: UNK
     Route: 030
     Dates: start: 20081117, end: 20081117
  3. REBIF [Concomitant]
     Indication: MULTIPLE SCLEROSIS
     Dosage: 44 A?G, THREE TIMES PER WEEK
  4. PROVIGIL [Concomitant]
     Indication: FATIGUE
     Dosage: 400 MG, QD
  5. CYMBALTA [Concomitant]
     Indication: AFFECTIVE DISORDER
     Dosage: 60 MG, QD
  6. MULTI-VITAMIN [Concomitant]
     Indication: VITAMIN SUPPLEMENTATION
     Dosage: UNK
  7. VITAMIN D [Concomitant]
     Indication: VITAMIN SUPPLEMENTATION
     Dosage: UNK

REACTIONS (5)
  - HYPERSENSITIVITY [None]
  - MUSCLE INJURY [None]
  - MUSCLE SWELLING [None]
  - MYOSITIS [None]
  - PYOMYOSITIS [None]
